FAERS Safety Report 4450543-X (Version None)
Quarter: 2004Q3

REPORT INFORMATION
  Report Type: 
  Country: None (occurrence: None)
  Receive Date: 20040914
  Receipt Date: 20040901
  Transmission Date: 20050211
  Serious: Yes (Life-Threatening)
  Sender: FDA-Public Use
  Company Number: US-2004-031135

PATIENT
  Age: 53 Year
  Sex: Male
  Weight: 80.7 kg

DRUGS (1)
  1. ULTRAVIST 300 [Suspect]
     Indication: COMPUTERISED TOMOGRAM
     Dosage: 100 ML, 1 DOSE, INTRAVENOUS
     Route: 042
     Dates: start: 20040901, end: 20040901

REACTIONS (6)
  - COLD SWEAT [None]
  - FEELING HOT [None]
  - HYPOAESTHESIA ORAL [None]
  - NASAL CONGESTION [None]
  - PALLOR [None]
  - VOMITING [None]
